FAERS Safety Report 25553482 (Version 2)
Quarter: 2025Q4

REPORT INFORMATION
  Report Type: Spontaneous
  Country: TW (occurrence: TW)
  Receive Date: 20250715
  Receipt Date: 20251013
  Transmission Date: 20260117
  Serious: Yes (Life-Threatening)
  Sender: ROCHE
  Company Number: TW-ROCHE-10000335808

PATIENT
  Age: 64 Year
  Sex: Male

DRUGS (1)
  1. ROZLYTREK [Suspect]
     Active Substance: ENTRECTINIB
     Indication: Non-small cell lung cancer
     Dosage: UNKNOWN DOSE
     Route: 048
     Dates: start: 20240501, end: 20240503

REACTIONS (3)
  - Ventricular arrhythmia [Unknown]
  - Aortic valve incompetence [Unknown]
  - Tricuspid valve incompetence [Unknown]
